FAERS Safety Report 4640843-2 (Version None)
Quarter: 2005Q2

REPORT INFORMATION
  Report Type: 
  Country: None (occurrence: None)
  Receive Date: 20050328
  Receipt Date: 20041201
  Transmission Date: 20051028
  Serious: No
  Sender: FDA-Public Use
  Company Number: SP00369

PATIENT
  Age: 61 Year
  Sex: Female

DRUGS (2)
  1. RIFAXIMIN [Suspect]
     Indication: GASTROINTESTINAL INFECTION
     Dosage: ORAL;  400 MG/BID,ORAL;  200MG/TID,ORAL
     Route: 048
  2. ANTIBIOTIC [Suspect]
     Indication: PREMEDICATION
     Dates: start: 20041008

REACTIONS (1)
  - TOOTH DISCOLOURATION [None]
